FAERS Safety Report 9314874 (Version 1)
Quarter: 2013Q2

REPORT INFORMATION
  Report Type: Spontaneous
  Country: DE (occurrence: DE)
  Receive Date: 20130529
  Receipt Date: 20130529
  Transmission Date: 20140414
  Serious: Yes (Death)
  Sender: FDA-Public Use
  Company Number: GXKR2013DE001949

PATIENT
  Age: 45 Year
  Sex: Male
  Weight: 78 kg

DRUGS (4)
  1. AMOCLAV [Suspect]
     Indication: CHRONIC OBSTRUCTIVE PULMONARY DISEASE
     Dosage: 2X1 DF WITH 875 MG AMOXICILLIN AND 125 MG CLAVULANATE/DAY
     Route: 048
     Dates: start: 20130411, end: 20130417
  2. TARGIN [Concomitant]
     Indication: DYSPNOEA
     Dosage: 1 DF, BID
     Route: 048
     Dates: start: 20130411, end: 20130420
  3. VIANI [Concomitant]
     Dosage: 2X2
     Route: 055
  4. ACLIDINIUM BROMIDE [Concomitant]
     Dosage: 2X1
     Route: 055

REACTIONS (2)
  - Metabolic acidosis [Fatal]
  - Acute hepatic failure [Fatal]
